FAERS Safety Report 4500246-8 (Version None)
Quarter: 2004Q4

REPORT INFORMATION
  Report Type: 
  Country: None (occurrence: None)
  Receive Date: 20041109
  Receipt Date: 20041022
  Transmission Date: 20050328
  Serious: Yes (Life-Threatening, Hospitalization)
  Sender: FDA-Public Use
  Company Number: 10061949-NA02-2

PATIENT
  Age: 10 Year
  Sex: Male
  Weight: 34.5 kg

DRUGS (20)
  1. TRAVASOL 10% [Suspect]
     Indication: GASTROSCHISIS
     Dosage: 26.5MG IN TPN, QD, IV
     Route: 042
     Dates: start: 19971001
  2. TRAVASOL 10% [Suspect]
     Indication: SHORT-BOWEL SYNDROME
     Dosage: 26.5MG IN TPN, QD, IV
     Route: 042
     Dates: start: 19971001
  3. INTRALIPID 10% [Suspect]
     Indication: GASTROSCHISIS
     Dosage: 300ML IN TPN, QD, IV
     Route: 042
     Dates: start: 19971001, end: 20040915
  4. INTRALIPID 10% [Suspect]
     Indication: SHORT-BOWEL SYNDROME
     Dosage: 300ML IN TPN, QD, IV
     Route: 042
     Dates: start: 19971001, end: 20040915
  5. 2A9018 INFUVITE ADULT [Concomitant]
     Indication: GASTROSCHISIS
     Dosage: QD
  6. 2A9018 INFUVITE ADULT [Concomitant]
     Indication: SHORT-BOWEL SYNDROME
     Dosage: QD
  7. STERILE WATER [Concomitant]
  8. IMODIUM [Concomitant]
  9. VITAMIN E [Concomitant]
  10. NYSTATIN [Concomitant]
  11. CHOLESTYRAMINE [Concomitant]
  12. LACTOBACILLUS [Concomitant]
  13. PRILOSEC [Concomitant]
  14. TYLENOL [Concomitant]
  15. OCEAN MIST NASAL SPRAY [Concomitant]
  16. FLAGYL [Concomitant]
  17. DEXTROSE 70% [Concomitant]
  18. MULTI-VITAMIN [Concomitant]
  19. LEVOCARNITINE [Concomitant]
  20. HEPARIN [Concomitant]

REACTIONS (8)
  - BLOOD TRIGLYCERIDES INCREASED [None]
  - CHOLELITHIASIS [None]
  - CHOLESTASIS [None]
  - HAEMATOCHEZIA [None]
  - HEPATIC FAILURE [None]
  - HEPATOMEGALY [None]
  - INTESTINAL OBSTRUCTION [None]
  - SPLENOMEGALY [None]
